FAERS Safety Report 16316272 (Version 4)
Quarter: 2020Q2

REPORT INFORMATION
  Report Type: Spontaneous
  Country: US (occurrence: US)
  Receive Date: 20190515
  Receipt Date: 20200504
  Transmission Date: 20200713
  Serious: Yes (Hospitalization)
  Sender: FDA-Public Use
  Company Number: US-SA-2019SA128557

PATIENT
  Age: 73 Year
  Sex: Female

DRUGS (2)
  1. DUPIXENT [Suspect]
     Active Substance: DUPILUMAB
     Dosage: 300 MG, QOW
     Route: 058
     Dates: start: 2019
  2. DUPIXENT [Suspect]
     Active Substance: DUPILUMAB
     Indication: PRODUCT USED FOR UNKNOWN INDICATION
     Dosage: 600 MG, 1X
     Route: 058
     Dates: start: 201904, end: 201904

REACTIONS (3)
  - Sinusitis [Unknown]
  - Upper limb fracture [Unknown]
  - Seasonal allergy [Unknown]
